FAERS Safety Report 7090093-8 (Version None)
Quarter: 2010Q4

REPORT INFORMATION
  Report Type: 
  Country: None (occurrence: None)
  Receive Date: 20101105
  Receipt Date: 20101105
  Transmission Date: 20110411
  Serious: Yes (Life-Threatening, Hospitalization)
  Sender: FDA-Public Use
  Company Number: None

PATIENT
  Sex: Male
  Weight: 106.5953 kg

DRUGS (1)
  1. VICTOZA [Suspect]
     Indication: TYPE 2 DIABETES MELLITUS
     Dosage: .6  2 WEEKS;  1.2  APPROX 3 DAYS
     Dates: start: 20100722, end: 20100808

REACTIONS (2)
  - PANCREATITIS [None]
  - WEIGHT DECREASED [None]
